FAERS Safety Report 8193579-8 (Version None)
Quarter: 2012Q1

REPORT INFORMATION
  Report Type: 
  Country: None (occurrence: None)
  Receive Date: 20120308
  Receipt Date: 20120228
  Transmission Date: 20120608
  Serious: Yes (Hospitalization)
  Sender: FDA-Public Use
  Company Number: FR-ROCHE-1044258

PATIENT
  Age: 41 Year
  Sex: Female

DRUGS (1)
  1. ACTEMRA [Suspect]
     Indication: RHEUMATOID ARTHRITIS
     Route: 042
     Dates: start: 20100430, end: 20110902

REACTIONS (3)
  - VIITH NERVE PARALYSIS [None]
  - EYE PAIN [None]
  - HEADACHE [None]
